FAERS Safety Report 21732248 (Version 1)
Quarter: 2022Q4

REPORT INFORMATION
  Report Type: Other
  Country: US (occurrence: None)
  Receive Date: 20221215
  Receipt Date: 20221215
  Transmission Date: 20230113
  Serious: Yes (Hospitalization)
  Sender: FDA-Public Use
  Company Number: US-ROCHE-3240353

PATIENT
  Age: 53 Year
  Sex: Female
  Weight: 78.088 kg

DRUGS (7)
  1. OCREVUS [Suspect]
     Active Substance: OCRELIZUMAB
     Indication: Relapsing-remitting multiple sclerosis
     Route: 042
     Dates: start: 202005
  2. GABAPENTIN [Concomitant]
     Active Substance: GABAPENTIN
  3. BACLOFEN [Concomitant]
     Active Substance: BACLOFEN
  4. DULOXETINE [Concomitant]
     Active Substance: DULOXETINE
  5. CLOBETASOL [Concomitant]
     Active Substance: CLOBETASOL
  6. TOPROL XL [Concomitant]
     Active Substance: METOPROLOL SUCCINATE
  7. EXTRA STRENGTH TYLENOL COLD [Concomitant]

REACTIONS (10)
  - Abscess [Not Recovered/Not Resolved]
  - Product dose omission issue [Unknown]
  - Blood glucose increased [Not Recovered/Not Resolved]
  - Infusion site reaction [Not Recovered/Not Resolved]
  - Fungal infection [Not Recovered/Not Resolved]
  - Musculoskeletal stiffness [Not Recovered/Not Resolved]
  - Haematoma [Not Recovered/Not Resolved]
  - Pain [Not Recovered/Not Resolved]
  - Inflammation [Not Recovered/Not Resolved]
  - B-lymphocyte count decreased [Unknown]

NARRATIVE: CASE EVENT DATE: 20200501
